FAERS Safety Report 8172895-X (Version None)
Quarter: 2012Q1

REPORT INFORMATION
  Report Type: 
  Country: None (occurrence: None)
  Receive Date: 20120223
  Receipt Date: 20120208
  Transmission Date: 20120608
  Serious: Yes (Hospitalization)
  Sender: FDA-Public Use
  Company Number: 1000025024

PATIENT
  Age: 84 Year
  Sex: Female

DRUGS (6)
  1. CITALOPRAM HYDROBROMIDE [Concomitant]
  2. OLMESARTAN MEDOXOMIL/AMLODIPINE/HYDROCHLOROTHIAZIDE [Suspect]
     Indication: ESSENTIAL HYPERTENSION
     Dosage: 10 MG/DAY + 2.5 MG/DAY + 6.25 MG/DAY (1 IN 1 D),ORAL
     Route: 048
     Dates: start: 20110629
  3. NEBIVOLOL HCL [Suspect]
     Dosage: 2.5 MG (2.5 MG, 1 IN 1 D),ORAL
     Route: 048
  4. CLOPIDOGREL [Concomitant]
  5. SIMVASTATIN [Concomitant]
  6. ASS(ACETYLSALICYLIC ACID) (ACETYLSALICYLIC ACID) [Concomitant]

REACTIONS (5)
  - SYNCOPE [None]
  - LACERATION [None]
  - CONTUSION [None]
  - HAEMORRHAGE [None]
  - HEADACHE [None]
